FAERS Safety Report 24594924 (Version 6)
Quarter: 2025Q1

REPORT INFORMATION
  Report Type: Spontaneous
  Country: JP (occurrence: JP)
  Receive Date: 20241108
  Receipt Date: 20250207
  Transmission Date: 20250409
  Serious: Yes (Life-Threatening, Hospitalization)
  Sender: BOEHRINGER INGELHEIM
  Company Number: JP-NBI-2024-BI-061703

PATIENT
  Age: 53 Year
  Sex: Male
  Weight: 59.3 kg

DRUGS (20)
  1. SPEVIGO [Suspect]
     Active Substance: SPESOLIMAB-SBZO
     Indication: Pustular psoriasis
  2. SPEVIGO [Suspect]
     Active Substance: SPESOLIMAB-SBZO
     Dates: start: 20241105, end: 20241105
  3. UNASYN [Concomitant]
     Active Substance: AMPICILLIN SODIUM\SULBACTAM SODIUM
     Indication: Bronchitis
  4. TALTZ [Concomitant]
     Active Substance: IXEKIZUMAB
     Indication: Pustular psoriasis
  5. TOLVAPTAN [Concomitant]
     Active Substance: TOLVAPTAN
     Indication: Product used for unknown indication
  6. FUROSEMIDE [Concomitant]
     Active Substance: FUROSEMIDE
     Indication: Product used for unknown indication
  7. ENTRESTO [Concomitant]
     Active Substance: SACUBITRIL\VALSARTAN
     Indication: Product used for unknown indication
  8. AMLODIPINE [Concomitant]
     Active Substance: AMLODIPINE BESYLATE
     Indication: Product used for unknown indication
  9. POLAPREZINC [Concomitant]
     Active Substance: POLAPREZINC
     Indication: Product used for unknown indication
  10. ENORAS [Concomitant]
     Indication: Product used for unknown indication
  11. DIETARY SUPPLEMENT\PROBIOTICS [Concomitant]
     Active Substance: DIETARY SUPPLEMENT\PROBIOTICS NOS
     Indication: Product used for unknown indication
  12. DAYVIGO [Concomitant]
     Active Substance: LEMBOREXANT
     Indication: Product used for unknown indication
  13. TRAZODONE HYDROCHLORIDE [Concomitant]
     Active Substance: TRAZODONE HYDROCHLORIDE
     Indication: Product used for unknown indication
  14. PETROLATUM [Concomitant]
     Active Substance: PETROLATUM
     Indication: Pustular psoriasis
  15. ANTEBATE:OINTMENT [Concomitant]
     Indication: Pustular psoriasis
  16. CELECOXIB [Concomitant]
     Active Substance: CELECOXIB
     Indication: Pyrexia
     Dates: start: 20241028, end: 20241030
  17. CALONAL [Concomitant]
     Active Substance: ACETAMINOPHEN
     Indication: Pyrexia
     Dates: start: 20241026, end: 20241030
  18. ASTOMIN [Concomitant]
     Indication: Pneumonia
  19. PURIFIED SODIUM HYALURONATE [Concomitant]
     Indication: Dry eye
  20. AMPICILLIN SODIUM\SULBACTAM SODIUM [Concomitant]
     Active Substance: AMPICILLIN SODIUM\SULBACTAM SODIUM
     Indication: Pneumonia
     Dates: start: 20241029, end: 20241106

REACTIONS (7)
  - Cardiac failure [Recovering/Resolving]
  - Cardiac failure [Recovered/Resolved]
  - Arthritis bacterial [Not Recovered/Not Resolved]
  - Muscle abscess [Not Recovered/Not Resolved]
  - Hypoalbuminaemia [Recovering/Resolving]
  - Urinary tract infection [Recovering/Resolving]
  - Pneumonia [Not Recovered/Not Resolved]

NARRATIVE: CASE EVENT DATE: 20241030
